FAERS Safety Report 19405553 (Version 4)
Quarter: 2022Q3

REPORT INFORMATION
  Report Type: Report from Study
  Country: US (occurrence: US)
  Receive Date: 20210611
  Receipt Date: 20220705
  Transmission Date: 20221027
  Serious: Yes (Hospitalization, Other)
  Sender: FDA-Public Use
  Company Number: US-TAKEDA-2021TUS035632

PATIENT
  Sex: Male
  Weight: 110 kg

DRUGS (1)
  1. IXAZOMIB [Suspect]
     Active Substance: IXAZOMIB
     Indication: Plasma cell myeloma
     Dosage: 4 MILLIGRAM
     Route: 048
     Dates: start: 202102

REACTIONS (5)
  - Illness [Unknown]
  - Escherichia infection [Unknown]
  - Urinary tract infection [Unknown]
  - COVID-19 [Unknown]
  - Constipation [Unknown]
